FAERS Safety Report 6962811-8 (Version None)
Quarter: 2010Q3

REPORT INFORMATION
  Report Type: 
  Country: None (occurrence: None)
  Receive Date: 20100823
  Receipt Date: 20100607
  Transmission Date: 20110219
  Serious: No
  Sender: FDA-Public Use
  Company Number: 013372

PATIENT
  Age: 45 Year
  Sex: Female
  Weight: 68 kg

DRUGS (4)
  1. CIMZIA [Suspect]
     Indication: CROHN'S DISEASE
     Dosage: (400 MG 1X/MONTH SUBCUTANEOUS)
     Route: 058
     Dates: start: 20100101
  2. MERCAPTOPURINE [Concomitant]
  3. IRON [Concomitant]
  4. BENADRYL /00945501/ [Concomitant]

REACTIONS (2)
  - FUNGAL INFECTION [None]
  - HYPERTENSION [None]
